FAERS Safety Report 6420427-6 (Version None)
Quarter: 2009Q4

REPORT INFORMATION
  Report Type: 
  Country: None (occurrence: None)
  Receive Date: 20091021
  Receipt Date: 20090810
  Transmission Date: 20100525
  Serious: No
  Sender: FDA-Public Use
  Company Number: ALL1-2009-02249

PATIENT
  Age: 10 Year
  Sex: Male

DRUGS (5)
  1. VYVANSE [Suspect]
     Indication: ATTENTION DEFICIT/HYPERACTIVITY DISORDER
     Dosage: 30 MG, 1X/DAY:QD, ORAL
     Route: 048
     Dates: start: 20090727, end: 20090810
  2. SINGULAIR [Concomitant]
  3. ALBUTEROL [Concomitant]
  4. ALBUTEROL [Concomitant]
  5. ZONEGRAN [Concomitant]

REACTIONS (2)
  - FORMICATION [None]
  - PRURITUS [None]
